FAERS Safety Report 20515050 (Version 2)
Quarter: 2022Q1

REPORT INFORMATION
  Report Type: Spontaneous
  Country: IT (occurrence: IT)
  Receive Date: 20220224
  Receipt Date: 20220228
  Transmission Date: 20220423
  Serious: Yes (Other)
  Sender: FDA-Public Use
  Company Number: None

PATIENT
  Age: 22 Year
  Sex: Female
  Weight: 55 kg

DRUGS (1)
  1. INFLIXIMAB [Suspect]
     Active Substance: INFLIXIMAB
     Indication: Proctitis ulcerative
     Dosage: 400 MG, CYCLIC
     Route: 042
     Dates: start: 20200714, end: 20201103

REACTIONS (6)
  - Groin abscess [Recovered/Resolved]
  - Purulent discharge [Recovered/Resolved]
  - Abscess limb [Recovered/Resolved]
  - Subcutaneous abscess [Recovered/Resolved]
  - Abscess [Recovered/Resolved]
  - Pain [Recovered/Resolved]

NARRATIVE: CASE EVENT DATE: 20201203
